FAERS Safety Report 9370841 (Version 1)
Quarter: 2013Q2

REPORT INFORMATION
  Report Type: Spontaneous
  Country: DE (occurrence: DE)
  Receive Date: 20130626
  Receipt Date: 20130626
  Transmission Date: 20140414
  Serious: Yes (Hospitalization)
  Sender: FDA-Public Use
  Company Number: DE-ABBOTT-13X-062-1084558-00

PATIENT
  Age: 78 Year
  Sex: Female
  Weight: 82.7 kg

DRUGS (4)
  1. CLARITHROMYCIN [Suspect]
     Indication: HELICOBACTER INFECTION
  2. PANTOPRAZOLE [Suspect]
     Indication: HELICOBACTER INFECTION
  3. AMOXICILLIN TRIHYDRATE [Suspect]
     Indication: HELICOBACTER INFECTION
  4. AMOXICILLIN W/CLARITHROMYCIN [Concomitant]
     Indication: PRODUCT USED FOR UNKNOWN INDICATION

REACTIONS (11)
  - Renal failure acute [Recovered/Resolved]
  - Pleural effusion [Unknown]
  - Cardiomegaly [Unknown]
  - Pulmonary fibrosis [Unknown]
  - Tubulointerstitial nephritis [Recovered/Resolved]
  - Inflammation [Recovering/Resolving]
  - Condition aggravated [Recovering/Resolving]
  - Arrhythmia [Unknown]
  - Feeling hot [Recovering/Resolving]
  - Stasis dermatitis [Unknown]
  - Inferior vena cava dilatation [Unknown]
